FAERS Safety Report 20998725 (Version 5)
Quarter: 2022Q3

REPORT INFORMATION
  Report Type: Spontaneous
  Country: FI (occurrence: FI)
  Receive Date: 20220623
  Receipt Date: 20220906
  Transmission Date: 20221026
  Serious: Yes (Life-Threatening, Hospitalization, Other)
  Sender: FDA-Public Use
  Company Number: FI-MYLANLABS-2022M1046972

PATIENT
  Age: 40 Year
  Sex: Male

DRUGS (1)
  1. ADALIMUMAB [Suspect]
     Active Substance: ADALIMUMAB
     Indication: Ankylosing spondylitis
     Dosage: UNK
     Route: 065

REACTIONS (5)
  - Fournier^s gangrene [Recovered/Resolved]
  - Streptococcal infection [Recovered/Resolved]
  - Abdominal distension [Recovered/Resolved]
  - Genital swelling [Recovered/Resolved]
  - Pyrexia [Recovered/Resolved]
